FAERS Safety Report 19151654 (Version 2)
Quarter: 2021Q2

REPORT INFORMATION
  Report Type: Spontaneous
  Country: US (occurrence: US)
  Receive Date: 20210419
  Receipt Date: 20210517
  Transmission Date: 20210717
  Serious: No
  Sender: FDA-Public Use
  Company Number: US-ALK-ABELLO A/S-2021AA001136

PATIENT

DRUGS (1)
  1. HISTATROL 1MG/ML (PERCUTANEOUS) [Suspect]
     Active Substance: HISTAMINE PHOSPHATE
     Indication: SKIN TEST

REACTIONS (1)
  - False negative investigation result [Unknown]

NARRATIVE: CASE EVENT DATE: 20210318
